FAERS Safety Report 16872670 (Version 4)
Quarter: 2020Q1

REPORT INFORMATION
  Report Type: Report from Study
  Country: JP (occurrence: JP)
  Receive Date: 20191001
  Receipt Date: 20200305
  Transmission Date: 20200409
  Serious: Yes (Other)
  Sender: FDA-Public Use
  Company Number: JP-BRISTOL-MYERS SQUIBB COMPANY-BMS-2019-088672

PATIENT
  Age: 57 Year
  Sex: Female
  Weight: 49.6 kg

DRUGS (14)
  1. BEVACIZUMAB. [Suspect]
     Active Substance: BEVACIZUMAB
     Indication: BREAST CANCER
     Dosage: 660 MILLIGRAM (10 MG/BODY)
     Route: 042
     Dates: start: 20180831, end: 20190607
  2. BEVACIZUMAB. [Suspect]
     Active Substance: BEVACIZUMAB
     Indication: PRODUCT USED FOR UNKNOWN INDICATION
     Dosage: 570 MILLIGRAM
     Route: 042
     Dates: start: 20180831, end: 20190830
  3. NIVOLUMAB [Suspect]
     Active Substance: NIVOLUMAB
     Indication: BREAST CANCER
     Dosage: 240 MILLIGRAM
     Route: 041
     Dates: start: 20180831, end: 20190830
  4. PACLITAXEL. [Suspect]
     Active Substance: PACLITAXEL
     Indication: PRODUCT USED FOR UNKNOWN INDICATION
     Dosage: 100 MILLIGRAM (65 MG/M2)
     Route: 042
     Dates: start: 20181026, end: 20190830
  5. BEVACIZUMAB. [Suspect]
     Active Substance: BEVACIZUMAB
     Indication: PRODUCT USED FOR UNKNOWN INDICATION
     Dosage: 570 MILLIGRAM
     Route: 042
     Dates: start: 20190705, end: 20190719
  6. LANSOPRAZOLE. [Concomitant]
     Active Substance: LANSOPRAZOLE
     Indication: ABDOMINAL PAIN UPPER
     Dosage: 15 MILLIGRAM, Q12H
     Route: 048
     Dates: start: 20190809, end: 20190913
  7. LEVOTHYROXINE NA [Concomitant]
     Active Substance: LEVOTHYROXINE SODIUM
     Indication: HYPOTHYROIDISM
     Dosage: 50 MICROGRAM, QD
     Route: 048
     Dates: start: 20190719
  8. TEPRENONE [Concomitant]
     Active Substance: TEPRENONE
     Indication: ABDOMINAL PAIN UPPER
     Dosage: 50 MILLIGRAM, Q8H
     Route: 048
     Dates: start: 20190830, end: 20190913
  9. YODEL [Concomitant]
     Active Substance: SENNA LEAF
     Indication: CONSTIPATION
     Dosage: 240 MILLIGRAM, PRN
     Route: 048
     Dates: start: 20190726
  10. LEVOTHYROXINE NA [Concomitant]
     Active Substance: LEVOTHYROXINE SODIUM
     Indication: PRODUCT USED FOR UNKNOWN INDICATION
     Dosage: 25 MICROGRAM, QD
     Route: 048
     Dates: start: 20190830
  11. PACLITAXEL. [Suspect]
     Active Substance: PACLITAXEL
     Indication: BREAST CANCER
     Dosage: 150 MILLIGRAM (90 MG/M2)
     Route: 042
     Dates: start: 20180831, end: 20181012
  12. CALCIUM LACTATE [Concomitant]
     Active Substance: CALCIUM LACTATE
     Indication: BREAST CANCER
     Dosage: 1 GRAM, Q8H
     Route: 048
  13. RANMARK [Concomitant]
     Active Substance: DENOSUMAB
     Indication: BREAST CANCER
     Dosage: 120 MILLIGRAM, Q4WK
     Route: 058
  14. LEVOTHYROXINE NA [Concomitant]
     Active Substance: LEVOTHYROXINE SODIUM
     Indication: PRODUCT USED FOR UNKNOWN INDICATION
     Dosage: UNK
     Route: 048
     Dates: start: 20190726

REACTIONS (1)
  - Gastric ulcer [Recovered/Resolved]

NARRATIVE: CASE EVENT DATE: 20190907
